FAERS Safety Report 8861167 (Version 1)
Quarter: 2012Q4

REPORT INFORMATION
  Report Type: Spontaneous
  Country: US (occurrence: None)
  Receive Date: 20121025
  Receipt Date: 20121025
  Transmission Date: 20130627
  Serious: No
  Sender: FDA-Public Use
  Company Number: None

PATIENT
  Sex: Female
  Weight: 65.77 kg

DRUGS (1)
  1. JUVEDERM ULTRA [Suspect]
     Indication: LIP OPERATION
     Dosage: 1 X 0.8 mL  1x injection
     Dates: start: 20120914

REACTIONS (2)
  - Drug effect decreased [None]
  - Product quality issue [None]
